FAERS Safety Report 25441454 (Version 1)
Quarter: 2025Q2

REPORT INFORMATION
  Report Type: Spontaneous
  Country: NL (occurrence: NL)
  Receive Date: 20250616
  Receipt Date: 20250616
  Transmission Date: 20250717
  Serious: Yes (Other)
  Sender: MYLAN
  Company Number: None

PATIENT
  Age: 63 Year
  Sex: Male
  Weight: 70 kg

DRUGS (12)
  1. AMIODARONE [Suspect]
     Active Substance: AMIODARONE
     Indication: Atrial fibrillation
     Dosage: 200 MILLIGRAM, Q8H (1 TABLET 3 TIMES A DAY)
     Dates: start: 20240505, end: 20241009
  2. AMIODARONE [Suspect]
     Active Substance: AMIODARONE
     Dosage: 200 MILLIGRAM, Q8H (1 TABLET 3 TIMES A DAY)
     Route: 048
     Dates: start: 20240505, end: 20241009
  3. AMIODARONE [Suspect]
     Active Substance: AMIODARONE
     Dosage: 200 MILLIGRAM, Q8H (1 TABLET 3 TIMES A DAY)
     Route: 048
     Dates: start: 20240505, end: 20241009
  4. AMIODARONE [Suspect]
     Active Substance: AMIODARONE
     Dosage: 200 MILLIGRAM, Q8H (1 TABLET 3 TIMES A DAY)
     Dates: start: 20240505, end: 20241009
  5. SERTRALINE [Suspect]
     Active Substance: SERTRALINE HYDROCHLORIDE
     Indication: Depression
     Dosage: 100 MILLIGRAM, QD (1 TABLET ONCE A DAY)
     Dates: start: 20231220
  6. SERTRALINE [Suspect]
     Active Substance: SERTRALINE HYDROCHLORIDE
     Dosage: 100 MILLIGRAM, QD (1 TABLET ONCE A DAY)
     Route: 048
     Dates: start: 20231220
  7. SERTRALINE [Suspect]
     Active Substance: SERTRALINE HYDROCHLORIDE
     Dosage: 100 MILLIGRAM, QD (1 TABLET ONCE A DAY)
     Route: 048
     Dates: start: 20231220
  8. SERTRALINE [Suspect]
     Active Substance: SERTRALINE HYDROCHLORIDE
     Dosage: 100 MILLIGRAM, QD (1 TABLET ONCE A DAY)
     Dates: start: 20231220
  9. CEFTRIAXONE [Concomitant]
     Active Substance: CEFTRIAXONE
  10. CEFTRIAXONE [Concomitant]
     Active Substance: CEFTRIAXONE
     Route: 065
  11. CEFTRIAXONE [Concomitant]
     Active Substance: CEFTRIAXONE
     Route: 065
  12. CEFTRIAXONE [Concomitant]
     Active Substance: CEFTRIAXONE

REACTIONS (2)
  - Pulmonary toxicity [Recovering/Resolving]
  - Product substitution issue [Unknown]
